FAERS Safety Report 5213352-X (Version None)
Quarter: 2007Q1

REPORT INFORMATION
  Report Type: 
  Country: None (occurrence: None)
  Receive Date: 20070119
  Receipt Date: 20060626
  Transmission Date: 20070707
  Serious: No
  Sender: FDA-Public Use
  Company Number: US-GLAXOSMITHKLINE-A0610323A

PATIENT
  Age: 54 Year
  Sex: Female

DRUGS (6)
  1. ARIXTRA [Suspect]
     Dosage: 7.5MGM PER DAY
     Route: 058
     Dates: start: 20060201
  2. INDOCIN [Concomitant]
  3. NEURONTIN [Concomitant]
  4. TEMAZEPAM [Concomitant]
  5. COLACE [Concomitant]
  6. FOSAMAX [Concomitant]

REACTIONS (1)
  - PAIN IN EXTREMITY [None]
